FAERS Safety Report 6750079-7 (Version None)
Quarter: 2010Q2

REPORT INFORMATION
  Report Type: 
  Country: None (occurrence: None)
  Receive Date: 20100527
  Receipt Date: 20100527
  Transmission Date: 20101027
  Serious: Yes (Hospitalization, Other)
  Sender: FDA-Public Use
  Company Number: None

PATIENT
  Sex: Male
  Weight: 86.637 kg

DRUGS (9)
  1. RIBAVIRIN [Suspect]
     Indication: HEPATITIS C
     Dosage: 3 CAPS -600MG-TWICE DAILY PO
     Route: 048
     Dates: start: 20100423, end: 20100526
  2. PEGASYS [Suspect]
     Indication: HEPATITIS C
     Dosage: 180MCG EVERY WEEK SQ
     Dates: start: 20100423, end: 20100526
  3. DIOVAN [Concomitant]
  4. CRESTOR [Concomitant]
  5. WELLBUTRIN [Concomitant]
  6. METOPROLOL TARTRATE [Concomitant]
  7. ASPIRIN [Concomitant]
  8. PLAVIX [Concomitant]
  9. ZOLOFT [Concomitant]

REACTIONS (4)
  - CYSTITIS [None]
  - HEADACHE [None]
  - MENINGITIS [None]
  - NECK PAIN [None]
